FAERS Safety Report 4876106-X (Version None)
Quarter: 2006Q1

REPORT INFORMATION
  Report Type: 
  Country: None (occurrence: None)
  Receive Date: 20060106
  Receipt Date: 20060106
  Transmission Date: 20060701
  Serious: No
  Sender: FDA-Public Use
  Company Number: None

PATIENT
  Age: 30 Year
  Sex: Female

DRUGS (1)
  1. ZOSYN [Suspect]
     Indication: CHRONIC SINUSITIS
     Dosage: 3.75 GM  Q 5 HR IV
     Route: 042
     Dates: start: 20051214, end: 20051231

REACTIONS (1)
  - RASH GENERALISED [None]
